FAERS Safety Report 7602182-7 (Version None)
Quarter: 2011Q3

REPORT INFORMATION
  Report Type: 
  Country: None (occurrence: None)
  Receive Date: 20110711
  Receipt Date: 20110628
  Transmission Date: 20111222
  Serious: Yes (Other)
  Sender: FDA-Public Use
  Company Number: CA-ELI_LILLY_AND_COMPANY-CA201106008105

PATIENT
  Sex: Male

DRUGS (4)
  1. PAXIL [Concomitant]
  2. TEMAZEPAM [Concomitant]
  3. ZYPREXA [Suspect]
     Indication: SCHIZOAFFECTIVE DISORDER
     Dosage: 10 MG, UNKNOWN
  4. EFFEXOR XR [Concomitant]

REACTIONS (5)
  - TYPE 2 DIABETES MELLITUS [None]
  - BRONCHITIS [None]
  - RENAL DISORDER [None]
  - TACHYCARDIA [None]
  - HYPERTENSION [None]
